FAERS Safety Report 7102587-7 (Version None)
Quarter: 2010Q4

REPORT INFORMATION
  Report Type: 
  Country: None (occurrence: None)
  Receive Date: 20101115
  Receipt Date: 20101112
  Transmission Date: 20110411
  Serious: Yes (Hospitalization)
  Sender: FDA-Public Use
  Company Number: A0869226A

PATIENT
  Age: 46 Year
  Sex: Male

DRUGS (7)
  1. LAMICTAL [Suspect]
     Dosage: 100MG FOUR TIMES PER DAY
     Route: 048
     Dates: start: 20090101
  2. TRILEPTAL [Concomitant]
  3. NAPROXEN [Concomitant]
  4. CITALOPRAM [Concomitant]
  5. MINOCYCLINE HCL [Concomitant]
  6. LISINOPRIL [Concomitant]
  7. UNKNOWN [Concomitant]

REACTIONS (4)
  - CONVULSION [None]
  - MEMORY IMPAIRMENT [None]
  - NIGHT SWEATS [None]
  - SOMNOLENCE [None]
